FAERS Safety Report 5989358-X (Version None)
Quarter: 2008Q4

REPORT INFORMATION
  Report Type: 
  Country: None (occurrence: None)
  Receive Date: 20081210
  Receipt Date: 20081128
  Transmission Date: 20090506
  Serious: Yes (Other)
  Sender: FDA-Public Use
  Company Number: ES-SANOFI-SYNTHELABO-A01200815437

PATIENT
  Age: 85 Year
  Sex: Female

DRUGS (9)
  1. ZYLORIC [Suspect]
     Indication: BLOOD TEST ABNORMAL
     Route: 048
     Dates: start: 19971201
  2. ZANTAC [Suspect]
     Indication: CARDIOMYOPATHY
     Route: 048
     Dates: start: 19971201
  3. SEKISAN [Suspect]
     Indication: COUGH
     Route: 048
     Dates: start: 19980216, end: 19980201
  4. NITRADISC [Suspect]
     Indication: CARDIOMYOPATHY
     Route: 039
     Dates: start: 19971201
  5. FERO-GRADUMET [Suspect]
     Indication: IRON DEFICIENCY ANAEMIA
     Dosage: UNK
     Route: 048
     Dates: start: 19971201
  6. ASPIRIN [Suspect]
     Indication: CARDIOMYOPATHY
     Route: 048
     Dates: start: 19971201
  7. SEGURIL [Suspect]
     Indication: CARDIOMYOPATHY
     Route: 048
     Dates: start: 19971201
  8. ZOLPIDEM [Suspect]
     Indication: CARDIOMYOPATHY
     Dosage: UNK
     Route: 048
     Dates: start: 19971201
  9. ACETYLCYSTEINE [Suspect]
     Indication: COUGH
     Route: 048
     Dates: start: 19980216, end: 19980201

REACTIONS (1)
  - STEVENS-JOHNSON SYNDROME [None]
